FAERS Safety Report 9701707 (Version 1)
Quarter: 2013Q4

REPORT INFORMATION
  Report Type: Spontaneous
  Country: US (occurrence: US)
  Receive Date: 20131119
  Receipt Date: 20131119
  Transmission Date: 20140711
  Serious: Yes (Other)
  Sender: FDA-Public Use
  Company Number: US-ORACLE-2011S1000030

PATIENT
  Age: 80 Year
  Sex: Male
  Weight: 89.36 kg

DRUGS (11)
  1. KRYSTEXXA INJECTION [Suspect]
     Indication: GOUT
     Route: 042
     Dates: start: 20110302, end: 20110302
  2. KRYSTEXXA INJECTION [Suspect]
     Indication: GOUT
     Route: 042
     Dates: start: 20110331, end: 20110331
  3. KRYSTEXXA INJECTION [Suspect]
     Indication: GOUT
     Route: 042
     Dates: start: 20110316, end: 20110306
  4. BENICAR [Concomitant]
     Indication: PRODUCT USED FOR UNKNOWN INDICATION
  5. INDOMETHACIN /00003801/ [Concomitant]
     Indication: PRODUCT USED FOR UNKNOWN INDICATION
  6. TENORMIN [Concomitant]
     Indication: PRODUCT USED FOR UNKNOWN INDICATION
  7. COLCHICINE [Concomitant]
     Indication: PRODUCT USED FOR UNKNOWN INDICATION
     Dates: start: 20060711
  8. ASPIRIN [Concomitant]
     Indication: PRODUCT USED FOR UNKNOWN INDICATION
  9. MULTIVITAMIN /00097801/ [Concomitant]
     Indication: PRODUCT USED FOR UNKNOWN INDICATION
  10. CLARITIN /00917501/ [Concomitant]
     Indication: PROPHYLAXIS
     Route: 048
     Dates: start: 20110330, end: 20110331
  11. SOLUCORTEF [Concomitant]
     Indication: PROPHYLAXIS
     Route: 042
     Dates: start: 20110331, end: 20110331

REACTIONS (1)
  - Infusion related reaction [Recovered/Resolved]
